FAERS Safety Report 25209708 (Version 3)
Quarter: 2025Q4

REPORT INFORMATION
  Report Type: Spontaneous
  Country: US (occurrence: US)
  Receive Date: 20250417
  Receipt Date: 20251010
  Transmission Date: 20260118
  Serious: Yes (Other)
  Sender: UCB
  Company Number: US-UCBSA-2025021296

PATIENT
  Age: 24 Year
  Sex: Female
  Weight: 64 kg

DRUGS (18)
  1. FINTEPLA [Interacting]
     Active Substance: FENFLURAMINE
     Indication: Lennox-Gastaut syndrome
     Dosage: 5.9 MILLILITER, 2X/DAY (BID)
     Route: 048
     Dates: start: 20240224
  2. FINTEPLA [Interacting]
     Active Substance: FENFLURAMINE
     Dosage: 2.5ML ROUND TO NEAREST TENTH PO BID FOR 7 D,
     Route: 048
  3. FINTEPLA [Interacting]
     Active Substance: FENFLURAMINE
     Dosage: 5.0ML ROUND TO NEAREST. TENTH PO BID FOR 7 D,
     Route: 048
  4. FINTEPLA [Interacting]
     Active Substance: FENFLURAMINE
     Dosage: 5.9 ML ROUND TO NEAREST TENTH PO BID THEREAFTER
     Route: 048
  5. FINTEPLA [Interacting]
     Active Substance: FENFLURAMINE
     Dosage: 5 MILLILITER, 2X/DAY (BID)
     Route: 048
  6. FINTEPLA [Interacting]
     Active Substance: FENFLURAMINE
     Dosage: UNK
     Dates: start: 202403
  7. FINTEPLA [Interacting]
     Active Substance: FENFLURAMINE
     Dosage: 22 MG/DAY
  8. FELBAMATE [Suspect]
     Active Substance: FELBAMATE
     Indication: Product used for unknown indication
     Dosage: 600 MILLIGRAM
     Route: 048
  9. FELBAMATE [Suspect]
     Active Substance: FELBAMATE
     Dosage: LOWER DOSE
  10. CALCIUM CARBONATE [Concomitant]
     Active Substance: CALCIUM CARBONATE
     Indication: Product used for unknown indication
     Dosage: 600 MILLIGRAM, ONCE DAILY (QD)
     Route: 048
  11. ETHINYL ESTRADIOL\NORETHINDRONE [Concomitant]
     Active Substance: ETHINYL ESTRADIOL\NORETHINDRONE
     Indication: Product used for unknown indication
     Dosage: 20 MCG
     Route: 048
  12. MINERALS\VITAMINS [Concomitant]
     Active Substance: MINERALS\VITAMINS
     Indication: Product used for unknown indication
     Dosage: DAILY
     Route: 048
  13. PROPRANOLOL [Concomitant]
     Active Substance: PROPRANOLOL HYDROCHLORIDE
     Indication: Product used for unknown indication
     Dosage: 60 MILLIGRAM, ONCE DAILY (QD)
     Route: 048
  14. CHOLECALCIFEROL [Concomitant]
     Active Substance: CHOLECALCIFEROL
     Indication: Product used for unknown indication
     Dosage: VITAMIN D3 1000 INTI UNITS ORAL TABLET
     Route: 048
  15. CHOLECALCIFEROL [Concomitant]
     Active Substance: CHOLECALCIFEROL
     Dosage: VITAMIN D3 1000 INTI UNITS ORAL TABLET), 25 MCG= 1 TAB, PO, DALLY
     Route: 048
  16. ONFI [Concomitant]
     Active Substance: CLOBAZAM
     Indication: Product used for unknown indication
     Dosage: 20 AND 30 QPM, MAY INCREASE I{} ONFI 40MG (2 TABS) BID WTWRI !^IOCDED
  17. ONFI [Concomitant]
     Active Substance: CLOBAZAM
     Dosage: ONFI 20 MG ORAL TABLETUNK
  18. ONFI [Concomitant]
     Active Substance: CLOBAZAM
     Dosage: 20 MILLIGRAM

REACTIONS (15)
  - Seizure [Unknown]
  - Tricuspid valve incompetence [Unknown]
  - Weight decreased [Unknown]
  - Irritability [Recovering/Resolving]
  - Defiant behaviour [Not Recovered/Not Resolved]
  - Dyspnoea [Not Recovered/Not Resolved]
  - Somnolence [Unknown]
  - Abdominal pain upper [Unknown]
  - Diarrhoea [Unknown]
  - Aggression [Unknown]
  - Abdominal pain [Unknown]
  - Fatigue [Unknown]
  - Headache [Not Recovered/Not Resolved]
  - Drug interaction [Unknown]
  - Adverse event [Unknown]

NARRATIVE: CASE EVENT DATE: 20250914
